FAERS Safety Report 21193420 (Version 1)
Quarter: 2022Q3

REPORT INFORMATION
  Report Type: Spontaneous
  Country: FR (occurrence: FR)
  Receive Date: 20220810
  Receipt Date: 20220810
  Transmission Date: 20221027
  Serious: Yes (Hospitalization, Other)
  Sender: FDA-Public Use
  Company Number: FR-AFSSAPS-DJ20221343

PATIENT
  Age: 68 Year
  Sex: Male

DRUGS (3)
  1. FLUCONAZOLE [Suspect]
     Active Substance: FLUCONAZOLE
     Indication: Intervertebral discitis
     Dosage: UNK
     Route: 048
     Dates: start: 20220521, end: 20220528
  2. CLOXACILLIN [Suspect]
     Active Substance: CLOXACILLIN
     Indication: Intervertebral discitis
     Dosage: UNK,
     Route: 042
     Dates: start: 20220415, end: 20220530
  3. MEROPENEM [Suspect]
     Active Substance: MEROPENEM
     Indication: Intervertebral discitis
     Dosage: UNK
     Route: 042
     Dates: start: 20220520, end: 20220602

REACTIONS (1)
  - Encephalopathy [Recovering/Resolving]

NARRATIVE: CASE EVENT DATE: 20220524
